FAERS Safety Report 11162488 (Version 3)
Quarter: 2017Q2

REPORT INFORMATION
  Report Type: Spontaneous
  Country: US (occurrence: US)
  Receive Date: 20150604
  Receipt Date: 20170606
  Transmission Date: 20170829
  Serious: No
  Sender: FDA-Public Use
  Company Number: US-SA-2015SA046581

PATIENT
  Age: 62 Year
  Sex: Female
  Weight: 53.07 kg

DRUGS (8)
  1. SOLOSTAR [Suspect]
     Active Substance: DEVICE
     Indication: TYPE 2 DIABETES MELLITUS
  2. SOLOSTAR [Suspect]
     Active Substance: DEVICE
     Indication: TYPE 2 DIABETES MELLITUS
     Dates: start: 2013
  3. LANTUS SOLOSTAR [Suspect]
     Active Substance: INSULIN GLARGINE
     Indication: TYPE 2 DIABETES MELLITUS
     Dosage: DOSE ON SLIDING SCALE DOSE:32 UNIT(S)
     Route: 065
     Dates: start: 2013
  4. LANTUS SOLOSTAR [Suspect]
     Active Substance: INSULIN GLARGINE
     Indication: TYPE 2 DIABETES MELLITUS
     Dosage: DOSE ON SLIDING SCALE DOSE:14 UNIT(S)
     Route: 065
     Dates: start: 20070314
  5. LANTUS SOLOSTAR [Suspect]
     Active Substance: INSULIN GLARGINE
     Indication: TYPE 2 DIABETES MELLITUS
     Dosage: DOSE ON SLIDING SCALE DOSE:32 UNIT(S)
     Route: 065
     Dates: start: 2013
  6. LANTUS SOLOSTAR [Suspect]
     Active Substance: INSULIN GLARGINE
     Indication: TYPE 2 DIABETES MELLITUS
     Dosage: DOSE ON SLIDING SCALE
     Route: 065
  7. SOLOSTAR [Suspect]
     Active Substance: DEVICE
     Indication: TYPE 2 DIABETES MELLITUS
     Dates: start: 20070314
  8. SOLOSTAR [Suspect]
     Active Substance: DEVICE
     Indication: TYPE 2 DIABETES MELLITUS
     Dates: start: 2013

REACTIONS (3)
  - Discomfort [Unknown]
  - Blood glucose increased [Unknown]
  - Injury associated with device [Unknown]

NARRATIVE: CASE EVENT DATE: 20150409
